FAERS Safety Report 20144302 (Version 1)
Quarter: 2021Q4

REPORT INFORMATION
  Report Type: Spontaneous
  Country: US (occurrence: None)
  Receive Date: 20211202
  Receipt Date: 20211202
  Transmission Date: 20220303
  Serious: Yes (Other)
  Sender: FDA-Public Use
  Company Number: None

PATIENT
  Age: 52 Year
  Sex: Female
  Weight: 75 kg

DRUGS (1)
  1. REGEN-COV [Suspect]
     Active Substance: CASIRIVIMAB\IMDEVIMAB
     Indication: COVID-19

REACTIONS (4)
  - Dyspnoea [None]
  - Erythema [None]
  - Heart rate increased [None]
  - Blood pressure systolic increased [None]

NARRATIVE: CASE EVENT DATE: 20211201
